FAERS Safety Report 5125089-6 (Version None)
Quarter: 2006Q4

REPORT INFORMATION
  Report Type: 
  Country: None (occurrence: None)
  Receive Date: 20061011
  Receipt Date: 20060927
  Transmission Date: 20070319
  Serious: Yes (Hospitalization)
  Sender: FDA-Public Use
  Company Number: PHHO2006DE16123

PATIENT
  Age: 55 Year
  Sex: Female
  Weight: 77 kg

DRUGS (5)
  1. ZOLEDRONATE [Suspect]
     Indication: METASTASES TO BONE
     Dosage: 4 MG, EVERY 4 WEEKS
     Route: 042
     Dates: start: 20040407
  2. VITAMIN D [Concomitant]
  3. CALCIUM GLUCONATE [Concomitant]
  4. TAMOXIFEN CITRATE [Concomitant]
     Dates: end: 20060601
  5. FEMARA [Concomitant]

REACTIONS (2)
  - OSTEONECROSIS [None]
  - SEQUESTRECTOMY [None]
